FAERS Safety Report 4406290-3 (Version None)
Quarter: 2004Q3

REPORT INFORMATION
  Report Type: 
  Country: None (occurrence: None)
  Receive Date: 20040716
  Receipt Date: 20040709
  Transmission Date: 20050211
  Serious: Yes (Disabling, Congenital Anomaly)
  Sender: FDA-Public Use
  Company Number: 2004SE03312

PATIENT
  Age: 53 Year
  Sex: Female
  Weight: 90 kg

DRUGS (1)
  1. ARIMIDEX [Suspect]
     Indication: MASTECTOMY
     Dates: start: 20030619, end: 20040630

REACTIONS (2)
  - HAEMATURIA [None]
  - HEADACHE [None]
